FAERS Safety Report 16886953 (Version 2)
Quarter: 2019Q4

REPORT INFORMATION
  Report Type: Spontaneous
  Country: DE (occurrence: DE)
  Receive Date: 20191004
  Receipt Date: 20191127
  Transmission Date: 20200122
  Serious: Yes (Hospitalization)
  Sender: FDA-Public Use
  Company Number: DE-GLAXOSMITHKLINE-DE2019177760

PATIENT
  Age: 12 Year
  Sex: Female

DRUGS (2)
  1. DICLOFENAC [Suspect]
     Active Substance: DICLOFENAC
     Indication: AGGRESSION
     Dosage: DAILY DOSE: 75 MG MILLGRAM(S) EVERY TOTAL ; IN TOTAL
     Route: 048
     Dates: start: 20190513, end: 20190513
  2. ZOPICLON [Suspect]
     Active Substance: ZOPICLONE
     Indication: AGGRESSION
     Dosage: DAILY DOSE: 10 MG MILLGRAM(S) EVERY 3 TOTAL ; IN TOTAL
     Route: 048
     Dates: start: 20190513, end: 20190513

REACTIONS (2)
  - Dizziness [Unknown]
  - Intentional overdose [Unknown]

NARRATIVE: CASE EVENT DATE: 20190513
